FAERS Safety Report 7318360-0 (Version None)
Quarter: 2011Q1

REPORT INFORMATION
  Report Type: 
  Country: None (occurrence: None)
  Receive Date: 20110217
  Receipt Date: 20110217
  Transmission Date: 20110831
  Serious: No
  Sender: FDA-Public Use
  Company Number: None

PATIENT
  Sex: Male
  Weight: 80 kg

DRUGS (6)
  1. CYTARABINE [Suspect]
     Dosage: 70 MG
  2. METHYLPREDNISOLONE [Suspect]
     Dosage: 3360 MG
  3. PEG-L- ASPARAGINASE (K- H) 4430 UNIT [Suspect]
  4. DAUNORUBICIN [Suspect]
     Dosage: 196 MG
  5. METHOTREXATE [Suspect]
     Dosage: 30 MG
  6. VINCRISTINE SULFATE [Suspect]
     Dosage: 8 MG

REACTIONS (2)
  - ALANINE AMINOTRANSFERASE INCREASED [None]
  - ASPARTATE AMINOTRANSFERASE INCREASED [None]
